FAERS Safety Report 11814666 (Version 1)
Quarter: 2015Q4

REPORT INFORMATION
  Report Type: Report from Study
  Country: US (occurrence: US)
  Receive Date: 20151209
  Receipt Date: 20151209
  Transmission Date: 20160305
  Serious: Yes (Hospitalization, Other)
  Sender: FDA-Public Use
  Company Number: US-AMGEN-USASL2015129353

PATIENT
  Age: 61 Year
  Sex: Female

DRUGS (1)
  1. PROLIA [Suspect]
     Active Substance: DENOSUMAB
     Indication: OSTEOPOROSIS
     Dosage: UNK, UNK
     Route: 065
     Dates: start: 201405

REACTIONS (6)
  - Spinal fusion surgery [Unknown]
  - Drug dose omission [Unknown]
  - Hospitalisation [Unknown]
  - Arthropathy [Unknown]
  - Device fastener issue [Unknown]
  - Prosthesis implantation [Unknown]
